FAERS Safety Report 7928556-2 (Version None)
Quarter: 2011Q4

REPORT INFORMATION
  Report Type: 
  Country: None (occurrence: None)
  Receive Date: 20111118
  Receipt Date: 20111107
  Transmission Date: 20120403
  Serious: Yes (Other)
  Sender: FDA-Public Use
  Company Number: GB-BRISTOL-MYERS SQUIBB COMPANY-16237984

PATIENT
  Age: 13 Year
  Sex: Female

DRUGS (5)
  1. VINCRISTINE [Suspect]
     Indication: EWING'S SARCOMA
     Dosage: SOLUTION FOR INF
     Route: 042
  2. IFOSFAMIDE [Suspect]
     Indication: EWING'S SARCOMA
     Dosage: SOLUTION FOR INF
     Route: 042
  3. DOXORUBICIN HCL [Suspect]
     Indication: EWING'S SARCOMA
     Dosage: SOLUTION FOR INF
     Route: 042
  4. ETOPOSIDE [Suspect]
     Indication: EWING'S SARCOMA
     Dosage: SOLUTION FOR INF
     Route: 042
  5. DACTINOMYCIN [Suspect]
     Indication: EWING'S SARCOMA
     Dosage: SOLUTION FOR INF
     Route: 042

REACTIONS (2)
  - NEPHROPATHY [None]
  - RENAL TUBULAR DISORDER [None]
